FAERS Safety Report 18045410 (Version 1)
Quarter: 2020Q3

REPORT INFORMATION
  Report Type: Spontaneous
  Country: NL (occurrence: NL)
  Receive Date: 20200720
  Receipt Date: 20200720
  Transmission Date: 20201103
  Serious: Yes (Death, Other)
  Sender: FDA-Public Use
  Company Number: NL-AMGEN-NLDSP2020112804

PATIENT

DRUGS (2)
  1. RADIUM RA 223 DICHLORIDE [Concomitant]
     Active Substance: RADIUM RA-223 DICHLORIDE
     Indication: HORMONE-REFRACTORY PROSTATE CANCER
     Dosage: UNK
  2. XGEVA [Suspect]
     Active Substance: DENOSUMAB
     Indication: PROSTATE CANCER METASTATIC
     Dosage: UNK
     Route: 065

REACTIONS (7)
  - Diarrhoea [Unknown]
  - Neutropenia [Unknown]
  - Nausea [Unknown]
  - Thrombocytopenia [Unknown]
  - Fatigue [Unknown]
  - Death [Fatal]
  - Anaemia [Unknown]
